FAERS Safety Report 9606062 (Version 1)
Quarter: 2013Q4

REPORT INFORMATION
  Report Type: Spontaneous
  Country: US (occurrence: US)
  Receive Date: 20131008
  Receipt Date: 20131008
  Transmission Date: 20140711
  Serious: No
  Sender: FDA-Public Use
  Company Number: US-AMGEN-USASP2013040764

PATIENT
  Age: 59 Year
  Sex: Female

DRUGS (12)
  1. PROLIA [Suspect]
     Indication: OSTEOPOROSIS POSTMENOPAUSAL
  2. FLEXERIL                           /00428402/ [Concomitant]
     Dosage: 10 MG, HS
  3. TRAMADOL [Concomitant]
     Dosage: 200 MG, QD
  4. TOPROL [Concomitant]
     Dosage: 25 MG, UNK
  5. PILOCARPINE [Concomitant]
     Dosage: 5 MG, TID
  6. CLINDAMYCIN [Concomitant]
  7. CALCIUM WITH VITAMIN D             /00944201/ [Concomitant]
  8. VITAMIN D                          /00107901/ [Concomitant]
     Dosage: UNK UNK, QWK
  9. ZANTAC [Concomitant]
     Dosage: 150 MG, UNK
  10. COQ10                              /00517201/ [Concomitant]
  11. CINNAMON                           /01647501/ [Concomitant]
     Dosage: 100 MG, BID
  12. OSTEO BI-FLEX [Concomitant]

REACTIONS (2)
  - Device malfunction [Unknown]
  - Tooth fracture [Unknown]
